FAERS Safety Report 16717021 (Version 1)
Quarter: 2019Q3

REPORT INFORMATION
  Report Type: Spontaneous
  Country: DE (occurrence: DE)
  Receive Date: 20190819
  Receipt Date: 20190819
  Transmission Date: 20191005
  Serious: Yes (Hospitalization, Other)
  Sender: FDA-Public Use
  Company Number: DE-TEVA-2019-DE-1092522

PATIENT
  Age: 29 Year
  Sex: Male
  Weight: 88 kg

DRUGS (6)
  1. VITAMIN C (ASCORBINSAURE) [Concomitant]
     Dosage: 2-2-2, BIS 10.03.2018
     Route: 048
  2. PARACETAMOL [Concomitant]
     Active Substance: ACETAMINOPHEN
     Dosage: 2-2-2, BIS 10.03.2018
     Route: 048
  3. PSEUDOEPHEDRIN [Concomitant]
     Active Substance: PSEUDOEPHEDRINE
     Dosage: 2-2-2, BIS 10.03.2018
     Route: 048
  4. IBUPROFEN. [Suspect]
     Active Substance: IBUPROFEN
     Dosage: 2-2-2, BIS 10.03.2018
     Route: 048
  5. CHLORPHENAMIN [Concomitant]
     Active Substance: CHLORPHENIRAMINE MALEATE
     Dosage: 2-2-2, BIS 10.03.2018
     Route: 048
  6. COFFEIN [Concomitant]
     Active Substance: CAFFEINE
     Dosage: 2-2-2, BIS 10.03.2018
     Route: 048

REACTIONS (3)
  - Pruritus [Recovered/Resolved]
  - Syncope [Recovered/Resolved]
  - Wound [Recovered/Resolved]
